FAERS Safety Report 9385923 (Version 4)
Quarter: 2013Q3

REPORT INFORMATION
  Report Type: Report from Study
  Country: DE (occurrence: DE)
  Receive Date: 20130705
  Receipt Date: 20130809
  Transmission Date: 20140515
  Serious: Yes (Death, Other)
  Sender: FDA-Public Use
  Company Number: DE-ABBOTT-13P-062-1038222-00

PATIENT
  Age: 75 Year
  Sex: Male

DRUGS (5)
  1. ENANTONE MONATSDEPOT [Suspect]
     Indication: PROSTATE CANCER METASTATIC
     Route: 058
     Dates: start: 20120813, end: 20130422
  2. ASS [Concomitant]
     Indication: PRODUCT USED FOR UNKNOWN INDICATION
  3. ANTI-ANDROGENS [Concomitant]
     Indication: PROSTATE CANCER METASTATIC
  4. ABIRATERONE [Concomitant]
     Indication: PROSTATE CANCER METASTATIC
     Route: 065
  5. BICALUTAMIDE [Concomitant]
     Indication: PROSTATE CANCER METASTATIC
     Route: 065

REACTIONS (3)
  - Hormone-refractory prostate cancer [Fatal]
  - Cardiac failure [Unknown]
  - Gamma-glutamyltransferase increased [Unknown]
